FAERS Safety Report 21639723 (Version 4)
Quarter: 2023Q4

REPORT INFORMATION
  Report Type: Spontaneous
  Country: US (occurrence: US)
  Receive Date: 20221124
  Receipt Date: 20231128
  Transmission Date: 20240109
  Serious: Yes (Other)
  Sender: FDA-Public Use
  Company Number: US-BRISTOL-MYERS SQUIBB COMPANY-2022-142746

PATIENT
  Age: 83 Year
  Sex: Female
  Weight: 66.22 kg

DRUGS (3)
  1. REVLIMID [Suspect]
     Active Substance: LENALIDOMIDE
     Indication: Plasma cell myeloma
     Dosage: FREQ: DAILY 21 ON 7 OFF/ 3 W, 1 W OFF
     Route: 048
  2. REVLIMID [Suspect]
     Active Substance: LENALIDOMIDE
     Route: 048
  3. REVLIMID [Suspect]
     Active Substance: LENALIDOMIDE
     Dosage: 3WKSON,1WKOFF
     Route: 048

REACTIONS (7)
  - COVID-19 [Unknown]
  - Diverticulitis [Unknown]
  - Fatigue [Unknown]
  - Full blood count decreased [Unknown]
  - Off label use [Unknown]
  - Pancytopenia [Unknown]
  - Palmar-plantar erythrodysaesthesia syndrome [Unknown]
